FAERS Safety Report 7961241-X (Version None)
Quarter: 2011Q4

REPORT INFORMATION
  Report Type: 
  Country: None (occurrence: None)
  Receive Date: 20111201
  Receipt Date: 20111201
  Transmission Date: 20120403
  Serious: Yes (Hospitalization)
  Sender: FDA-Public Use
  Company Number: None

PATIENT
  Sex: Female
  Weight: 67.1324 kg

DRUGS (6)
  1. METOPROLOL TARTRATE [Concomitant]
  2. ASPIRIN [Concomitant]
  3. LISINOPRIL [Concomitant]
  4. LOPRESSOR [Concomitant]
  5. CLOPIDOGREL [Suspect]
     Indication: ANTIPLATELET THERAPY
     Dosage: 75 MG, QD
     Dates: start: 20100907, end: 20111007
  6. NIRVASC [Concomitant]

REACTIONS (4)
  - ELECTROCARDIOGRAM ST SEGMENT DEPRESSION [None]
  - CHEST PAIN [None]
  - MYOCARDIAL ISCHAEMIA [None]
  - HYPERTENSION [None]
